FAERS Safety Report 5850497-5 (Version None)
Quarter: 2008Q3

REPORT INFORMATION
  Report Type: 
  Country: None (occurrence: None)
  Receive Date: 20080819
  Receipt Date: 20080807
  Transmission Date: 20090109
  Serious: Yes (Hospitalization, Other)
  Sender: FDA-Public Use
  Company Number: US-PFIZER INC-2008066751

PATIENT
  Sex: Female
  Weight: 68 kg

DRUGS (3)
  1. LYRICA [Suspect]
     Indication: COMPLEX REGIONAL PAIN SYNDROME
  2. MORPHINE [Concomitant]
  3. TOPAMAX [Concomitant]

REACTIONS (3)
  - CATARACT [None]
  - HYSTEROSALPINGO-OOPHORECTOMY [None]
  - OEDEMA PERIPHERAL [None]
